FAERS Safety Report 24061295 (Version 1)
Quarter: 2024Q3

REPORT INFORMATION
  Report Type: Spontaneous
  Country: SE (occurrence: SE)
  Receive Date: 20240708
  Receipt Date: 20240708
  Transmission Date: 20241017
  Serious: Yes (Disabling)
  Sender: MYLAN
  Company Number: None

PATIENT
  Age: 27 Year
  Sex: Female
  Weight: 54 kg

DRUGS (1)
  1. SERTRALINE HYDROCHLORIDE [Suspect]
     Active Substance: SERTRALINE HYDROCHLORIDE
     Indication: Anxiety
     Dosage: 50 MILLIGRAM, QD, 1 TABLET ONCE PER DAY
     Route: 048
     Dates: start: 20190417, end: 20230201

REACTIONS (5)
  - Cognitive disorder [Unknown]
  - Obsessive thoughts [Recovered/Resolved]
  - Suicidal ideation [Recovered/Resolved]
  - Anxiety [Recovered/Resolved with Sequelae]
  - Depression [Recovered/Resolved]

NARRATIVE: CASE EVENT DATE: 20190418
